FAERS Safety Report 21415117 (Version 1)
Quarter: 2022Q4

REPORT INFORMATION
  Report Type: Spontaneous
  Country: DE (occurrence: DE)
  Receive Date: 20221006
  Receipt Date: 20221006
  Transmission Date: 20230113
  Serious: Yes (Other)
  Sender: FDA-Public Use
  Company Number: DE-NOVARTISPH-NVSC2022DE222719

PATIENT
  Age: 36 Year
  Sex: Female

DRUGS (5)
  1. CARBOPLATIN [Suspect]
     Active Substance: CARBOPLATIN
     Indication: Breast cancer metastatic
     Dosage: UNK
     Route: 065
     Dates: start: 201801
  2. CARBOPLATIN [Suspect]
     Active Substance: CARBOPLATIN
     Dosage: UNK UNK, CYCLIC (DOSE REDUCED TO 60% FROM 7TH CYCLE)
     Route: 065
     Dates: start: 201804, end: 201809
  3. CARBOPLATIN [Suspect]
     Active Substance: CARBOPLATIN
     Dosage: UNK UNK, CYCLIC (STOPPED AFTER 12 CYCLES)
     Route: 065
     Dates: end: 201809
  4. AVASTIN [Suspect]
     Active Substance: BEVACIZUMAB
     Indication: Breast cancer metastatic
     Dosage: UNK
     Route: 065
     Dates: start: 201801
  5. AVASTIN [Suspect]
     Active Substance: BEVACIZUMAB
     Dosage: UNK UNK, CYCLIC (TEMPORARILY STOPPED AFTER 12 CYCLES)
     Route: 065

REACTIONS (4)
  - Leukopenia [Unknown]
  - Abdominal discomfort [Unknown]
  - Flushing [Unknown]
  - Pruritus [Unknown]
